FAERS Safety Report 15005874 (Version 1)
Quarter: 2018Q2

REPORT INFORMATION
  Report Type: Spontaneous
  Country: US (occurrence: US)
  Receive Date: 20180525
  Receipt Date: 20180525
  Transmission Date: 20180711
  Serious: Yes (Disabling)
  Sender: FDA-Public Use
  Company Number: None

PATIENT
  Age: 48 Year
  Sex: Female
  Weight: 91.8 kg

DRUGS (8)
  1. CHOLECALCIFEROL (VITAMIN D3) [Concomitant]
  2. LISINOPRIL. [Concomitant]
     Active Substance: LISINOPRIL
  3. OMNISCAN [Suspect]
     Active Substance: GADODIAMIDE
     Indication: NUCLEAR MAGNETIC RESONANCE IMAGING
     Route: 042
     Dates: start: 20130722, end: 20180404
  4. ATORVASTATIN CALCIUM. [Concomitant]
     Active Substance: ATORVASTATIN CALCIUM
  5. GABAPENTIN. [Concomitant]
     Active Substance: GABAPENTIN
  6. IBUPROPHIN [Concomitant]
  7. ROPINIROLE HCI [Concomitant]
  8. ASPRIN [Concomitant]
     Active Substance: ASPIRIN

REACTIONS (22)
  - Amnesia [None]
  - Confusional state [None]
  - Hepatic pain [None]
  - Asthenia [None]
  - Tendon pain [None]
  - Skin exfoliation [None]
  - Limb discomfort [None]
  - Pain [None]
  - Platelet count increased [None]
  - White blood cell count increased [None]
  - Skin lesion [None]
  - Arthralgia [None]
  - Coordination abnormal [None]
  - Blood calcium increased [None]
  - Scar [None]
  - Mental impairment [None]
  - Blood count abnormal [None]
  - Soft tissue disorder [None]
  - Disturbance in attention [None]
  - Loss of personal independence in daily activities [None]
  - Loss of employment [None]
  - Headache [None]

NARRATIVE: CASE EVENT DATE: 20130722
